FAERS Safety Report 16659550 (Version 3)
Quarter: 2019Q3

REPORT INFORMATION
  Report Type: Report from Study
  Country: JP (occurrence: JP)
  Receive Date: 20190802
  Receipt Date: 20190828
  Transmission Date: 20191004
  Serious: Yes (Death, Hospitalization, Other)
  Sender: FDA-Public Use
  Company Number: JP-ROCHE-2362215

PATIENT
  Age: 57 Year
  Sex: Female
  Weight: 56.4 kg

DRUGS (12)
  1. LANSOPRAZOLE. [Concomitant]
     Active Substance: LANSOPRAZOLE
     Indication: PROPHYLAXIS AGAINST GASTROINTESTINAL ULCER
     Route: 048
     Dates: start: 20190307, end: 20190716
  2. EDOXABAN TOSILATE [Concomitant]
     Active Substance: EDOXABAN TOSYLATE
     Route: 065
  3. TRASTUZUMAB EMTANSINE [Suspect]
     Active Substance: ADO-TRASTUZUMAB EMTANSINE
     Indication: LUNG ADENOCARCINOMA
     Route: 041
     Dates: start: 20190716, end: 20190716
  4. LEVOFLOXACIN. [Concomitant]
     Active Substance: LEVOFLOXACIN
     Indication: URINARY TRACT INFECTION
     Route: 048
     Dates: start: 20190712, end: 20190716
  5. ACELIO [Concomitant]
     Active Substance: ACETAMINOPHEN
     Indication: CANCER PAIN
     Route: 042
     Dates: start: 20190707
  6. HEPARIN [Suspect]
     Active Substance: HEPARIN SODIUM
     Indication: PULMONARY EMBOLISM
     Dosage: DOSE: 15000 UNITS
     Route: 041
     Dates: start: 20190711, end: 20190717
  7. PREDONINE [Concomitant]
     Active Substance: PREDNISOLONE
     Indication: DECREASED APPETITE
  8. L-CARBOCYSTEINE [Concomitant]
     Active Substance: CARBOCYSTEINE
     Indication: COUGH
     Route: 048
     Dates: start: 20190617, end: 20190716
  9. PREDONINE [Concomitant]
     Active Substance: PREDNISOLONE
     Indication: MALAISE
     Route: 048
     Dates: start: 20190710, end: 20190716
  10. SOLDEM 3AG [Concomitant]
     Indication: DECREASED APPETITE
     Route: 042
     Dates: start: 20190705
  11. VITAMEDIN [BENFOTIAMINE;CYANOCOBALAMIN;PYRIDOXINE HYDROCHLORIDE] [Concomitant]
     Indication: DECREASED APPETITE
     Dosage: DOSE: 1V
     Route: 042
     Dates: start: 20190704
  12. THYRADIN S [Concomitant]
     Active Substance: LEVOTHYROXINE SODIUM
     Indication: HYPOTHYROIDISM
     Route: 048
     Dates: start: 20190618, end: 20190716

REACTIONS (2)
  - Cerebral haemorrhage [Fatal]
  - Cardiac disorder [Not Recovered/Not Resolved]

NARRATIVE: CASE EVENT DATE: 20190716
